FAERS Safety Report 24661901 (Version 3)
Quarter: 2024Q4

REPORT INFORMATION
  Report Type: Spontaneous
  Country: JP (occurrence: JP)
  Receive Date: 20241125
  Receipt Date: 20241217
  Transmission Date: 20250115
  Serious: Yes (Other)
  Sender: BRACCO
  Company Number: JP-BAYER-2024A165332

PATIENT
  Age: 81 Year
  Sex: Male

DRUGS (1)
  1. IOPAMIDOL [Suspect]
     Active Substance: IOPAMIDOL
     Indication: Aortogram
     Dosage: UNK, ONCE

REACTIONS (1)
  - Contrast encephalopathy [Unknown]
